FAERS Safety Report 15326923 (Version 1)
Quarter: 2018Q3

REPORT INFORMATION
  Report Type: Spontaneous
  Country: US (occurrence: US)
  Receive Date: 20180823
  Receipt Date: 20180823
  Transmission Date: 20181010
  Serious: Yes (Hospitalization)
  Sender: FDA-Public Use
  Company Number: None

PATIENT
  Age: 45 Year
  Sex: Male
  Weight: 168 kg

DRUGS (2)
  1. PEMBROLIZUMAB. [Suspect]
     Active Substance: PEMBROLIZUMAB
     Indication: COLORECTAL CANCER
     Dosage: ?          OTHER FREQUENCY:Q3WEEKS;?
     Route: 041
     Dates: start: 20180731
  2. IBRUTINIB [Suspect]
     Active Substance: IBRUTINIB
     Indication: COLORECTAL CANCER
     Route: 048
     Dates: start: 20180731, end: 20180820

REACTIONS (1)
  - Fatigue [None]

NARRATIVE: CASE EVENT DATE: 20180820
